FAERS Safety Report 23177530 (Version 2)
Quarter: 2023Q4

REPORT INFORMATION
  Report Type: Report from Study
  Country: CA (occurrence: CA)
  Receive Date: 20231113
  Receipt Date: 20231211
  Transmission Date: 20240109
  Serious: Yes (Other)
  Sender: FDA-Public Use
  Company Number: CA-OTSUKA-2023_028985

PATIENT
  Age: 36 Year
  Sex: Female

DRUGS (3)
  1. TOLVAPTAN [Suspect]
     Active Substance: TOLVAPTAN
     Indication: Congenital cystic kidney disease
     Dosage: 45 MG, QD (IN AM)
     Route: 048
     Dates: start: 20231020
  2. TOLVAPTAN [Suspect]
     Active Substance: TOLVAPTAN
     Dosage: 15 MG, QD (8 H LATER IN PM)
     Route: 048
     Dates: start: 20231020
  3. VITAMIN D NOS [Concomitant]
     Active Substance: VITAMIN D NOS
     Indication: Vitamin D deficiency
     Dosage: 2000 IU, QD (IN AM) (30 AG)
     Route: 065
     Dates: start: 202211

REACTIONS (15)
  - Lip haemorrhage [Recovering/Resolving]
  - Livedo reticularis [Recovering/Resolving]
  - Hyperaesthesia [Recovering/Resolving]
  - Feeling abnormal [Recovering/Resolving]
  - Chapped lips [Recovering/Resolving]
  - Pain of skin [Recovering/Resolving]
  - Feeling cold [Recovering/Resolving]
  - Middle insomnia [Recovering/Resolving]
  - Muscle spasms [Recovering/Resolving]
  - Myalgia [Recovering/Resolving]
  - Palpitations [Recovering/Resolving]
  - Fatigue [Recovering/Resolving]
  - Nocturia [Recovering/Resolving]
  - Thirst [Not Recovered/Not Resolved]
  - Dizziness [Recovering/Resolving]

NARRATIVE: CASE EVENT DATE: 20231020
